FAERS Safety Report 9321196 (Version 6)
Quarter: 2014Q4

REPORT INFORMATION
  Report Type: Spontaneous
  Country: ES (occurrence: ES)
  Receive Date: 20130531
  Receipt Date: 20141009
  Transmission Date: 20150529
  Serious: Yes (Other)
  Sender: FDA-Public Use
  Company Number: ES-VERTEX PHARMACEUTICALS INC-2013-006586

PATIENT

DRUGS (3)
  1. INCIVO [Suspect]
     Active Substance: TELAPREVIR
     Indication: CHRONIC HEPATITIS C
     Dosage: UNK
     Route: 048
     Dates: start: 201301, end: 201306
  2. PEGYLATED INTERFERON NOS [Suspect]
     Active Substance: PEGINTERFERON ALFA-2A OR PEGINTERFERON ALFA-2B OR PEGINTERFERON BETA-1A OR PEGINTERFERON LAMBDA-1A
     Indication: CHRONIC HEPATITIS C
     Route: 065
  3. RIBAVIRINE [Suspect]
     Active Substance: RIBAVIRIN
     Indication: CHRONIC HEPATITIS C
     Route: 065

REACTIONS (6)
  - Adverse event [Unknown]
  - Drug ineffective [Unknown]
  - Neutropenia [Unknown]
  - Anaemia [Unknown]
  - Thrombocytopenia [Unknown]
  - Rash [Unknown]
